FAERS Safety Report 11233516 (Version 1)
Quarter: 2015Q3

REPORT INFORMATION
  Report Type: Spontaneous
  Country: US (occurrence: US)
  Receive Date: 20150702
  Receipt Date: 20150702
  Transmission Date: 20151125
  Serious: Yes (Hospitalization, Other)
  Sender: FDA-Public Use
  Company Number: US-JNJFOC-20150623290

PATIENT
  Age: 76 Year
  Sex: Female

DRUGS (3)
  1. METFORMIN [Concomitant]
     Active Substance: METFORMIN HYDROCHLORIDE
     Indication: TYPE 2 DIABETES MELLITUS
     Route: 065
  2. ACETAMINOPHEN. [Suspect]
     Active Substance: ACETAMINOPHEN
     Indication: PAIN IN EXTREMITY
     Dosage: 8 EXTRA TABLETS DAILY
     Route: 048
  3. ACETAMINOPHEN. [Suspect]
     Active Substance: ACETAMINOPHEN
     Indication: BACK PAIN
     Dosage: 8 EXTRA TABLETS DAILY
     Route: 048

REACTIONS (7)
  - Overdose [Unknown]
  - Metabolic acidosis [Unknown]
  - Lethargy [Recovering/Resolving]
  - Eating disorder [Unknown]
  - Somnolence [Recovering/Resolving]
  - Confusional state [Recovering/Resolving]
  - Activities of daily living impaired [Unknown]
